FAERS Safety Report 7771037-X (Version None)
Quarter: 2011Q3

REPORT INFORMATION
  Report Type: 
  Country: None (occurrence: None)
  Receive Date: 20110922
  Receipt Date: 20110207
  Transmission Date: 20111222
  Serious: Yes (Other)
  Sender: FDA-Public Use
  Company Number: US-ASTRAZENECA-2011SE06856

PATIENT
  Sex: Female

DRUGS (5)
  1. LEXAPRO [Suspect]
     Route: 048
     Dates: start: 20110101
  2. TOPAMAX [Suspect]
     Route: 048
     Dates: start: 20110101
  3. NEURONTIN [Suspect]
     Route: 065
     Dates: start: 20110101
  4. MIRALAX [Suspect]
     Indication: NUCLEAR MAGNETIC RESONANCE IMAGING
     Route: 048
     Dates: start: 20110124
  5. SEROQUEL [Suspect]
     Route: 048
     Dates: start: 20110101

REACTIONS (3)
  - OVERDOSE [None]
  - SWELLING FACE [None]
  - OEDEMA PERIPHERAL [None]
